FAERS Safety Report 14430616 (Version 2)
Quarter: 2018Q1

REPORT INFORMATION
  Report Type: Spontaneous
  Country: US (occurrence: US)
  Receive Date: 20180124
  Receipt Date: 20180322
  Transmission Date: 20180509
  Serious: No
  Sender: FDA-Public Use
  Company Number: US-009507513-1801USA008330

PATIENT
  Sex: Male

DRUGS (3)
  1. ZEPATIER [Suspect]
     Active Substance: ELBASVIR\GRAZOPREVIR
     Indication: HEPATITIS C
     Dosage: 100/50 MG, DAILY
     Route: 048
     Dates: start: 20171019
  2. IBUPROFEN. [Concomitant]
     Active Substance: IBUPROFEN
     Dosage: UNK
  3. RIBAVIRIN (WARRICK) [Concomitant]
     Active Substance: RIBAVIRIN
     Dosage: UNK

REACTIONS (7)
  - Fatigue [Unknown]
  - Nausea [Unknown]
  - White blood cell count decreased [Unknown]
  - Chromaturia [Unknown]
  - Chest discomfort [Unknown]
  - Dyspnoea [Unknown]
  - Asthenia [Unknown]
